FAERS Safety Report 15607940 (Version 2)
Quarter: 2018Q4

REPORT INFORMATION
  Report Type: Spontaneous
  Country: US (occurrence: US)
  Receive Date: 20181112
  Receipt Date: 20181220
  Transmission Date: 20190205
  Serious: No
  Sender: FDA-Public Use
  Company Number: US-CELGENEUS-USA-20181101084

PATIENT
  Sex: Male
  Weight: 50 kg

DRUGS (3)
  1. VIDAZA [Suspect]
     Active Substance: AZACITIDINE
     Dosage: (DOSE INCREASED)
     Route: 065
     Dates: start: 201811
  2. VIDAZA [Suspect]
     Active Substance: AZACITIDINE
     Indication: MYELODYSPLASTIC SYNDROME
     Route: 041
  3. VIDAZA [Suspect]
     Active Substance: AZACITIDINE
     Dosage: 160 MILLIGRAM
     Route: 065
     Dates: start: 20181029, end: 20181102

REACTIONS (2)
  - Eyelid disorder [Recovered/Resolved]
  - Eyelid pain [Recovered/Resolved]

NARRATIVE: CASE EVENT DATE: 2018
